FAERS Safety Report 5927333-1 (Version None)
Quarter: 2008Q4

REPORT INFORMATION
  Report Type: 
  Country: None (occurrence: None)
  Receive Date: 20081020
  Receipt Date: 20081007
  Transmission Date: 20090506
  Serious: Yes (Life-Threatening, Other)
  Sender: FDA-Public Use
  Company Number: PAR_02313_2008

PATIENT
  Sex: Female
  Weight: 40.3701 kg

DRUGS (5)
  1. MEGACE ES [Suspect]
     Indication: WEIGHT DECREASED
     Dosage: 1 DF QD, 625 MG/5 ML ORAL
     Route: 048
     Dates: start: 20080801, end: 20080801
  2. NEXIUM [Concomitant]
  3. ATENOLOL [Concomitant]
  4. ENTOCORT EC [Concomitant]
  5. SPIRIVA [Concomitant]

REACTIONS (1)
  - DEEP VEIN THROMBOSIS [None]
